FAERS Safety Report 6434615-6 (Version None)
Quarter: 2009Q4

REPORT INFORMATION
  Report Type: 
  Country: None (occurrence: None)
  Receive Date: 20091110
  Receipt Date: 20091030
  Transmission Date: 20100525
  Serious: Yes (Other)
  Sender: FDA-Public Use
  Company Number: B0595996A

PATIENT
  Age: 59 Year
  Sex: Male

DRUGS (2)
  1. ROSIGLITAZONE MALEATE AND METFORMIN HCL [Suspect]
     Route: 065
  2. COMPETACT [Suspect]
     Indication: DRUG USE FOR UNKNOWN INDICATION
     Route: 065

REACTIONS (1)
  - PERNICIOUS ANAEMIA [None]
